FAERS Safety Report 11239336 (Version 1)
Quarter: 2015Q3

REPORT INFORMATION
  Report Type: Spontaneous
  Country: US (occurrence: US)
  Receive Date: 20150706
  Receipt Date: 20150706
  Transmission Date: 20151125
  Serious: No
  Sender: FDA-Public Use
  Company Number: US-BAYER-2015-371173

PATIENT
  Age: 16 Year
  Sex: Male
  Weight: 79 kg

DRUGS (1)
  1. ALEVE [Suspect]
     Active Substance: NAPROXEN SODIUM
     Indication: TENDONITIS
     Dosage: 6 DF, WITHIN 24 HOURS
     Route: 048
     Dates: start: 20150630

REACTIONS (1)
  - Product use issue [None]

NARRATIVE: CASE EVENT DATE: 20150630
